FAERS Safety Report 9769692 (Version 1)
Quarter: 2013Q4

REPORT INFORMATION
  Report Type: Spontaneous
  Country: US (occurrence: US)
  Receive Date: 20131218
  Receipt Date: 20131218
  Transmission Date: 20140711
  Serious: No
  Sender: FDA-Public Use
  Company Number: US-VERTEX PHARMACEUTICALS INC-AE-2011-000428

PATIENT
  Age: 64 Year
  Sex: Female
  Weight: 113.64 kg

DRUGS (8)
  1. INCIVEK [Suspect]
     Indication: HEPATITIS C
     Dates: start: 20110629
  2. PEGASYS [Concomitant]
     Indication: HEPATITIS C
     Dates: start: 20110629
  3. RIBAVIRIN [Concomitant]
     Indication: HEPATITIS C
     Dates: start: 20110629
  4. METFORMIN [Concomitant]
  5. EXFORGE [Concomitant]
  6. JANUVIA [Concomitant]
  7. ASA [Concomitant]
  8. MILK THISTLE [Concomitant]

REACTIONS (8)
  - Pyrexia [Unknown]
  - Hyperhidrosis [Unknown]
  - Insomnia [Unknown]
  - Feeling of body temperature change [Unknown]
  - Rash [Unknown]
  - Anal pruritus [Unknown]
  - Nausea [Unknown]
  - Fatigue [Unknown]
